FAERS Safety Report 10371652 (Version 1)
Quarter: 2014Q3

REPORT INFORMATION
  Report Type: Spontaneous
  Country: US (occurrence: None)
  Receive Date: 20140807
  Receipt Date: 20140807
  Transmission Date: 20150326
  Serious: Yes (Other)
  Sender: FDA-Public Use
  Company Number: None

PATIENT
  Age: 11 Year
  Sex: Male
  Weight: 54.43 kg

DRUGS (1)
  1. METHYLPHENIDATE HCI ER 54 MG MALLINCKRODT [Suspect]
     Active Substance: METHYLPHENIDATE HYDROCHLORIDE
     Indication: ATTENTION DEFICIT/HYPERACTIVITY DISORDER
     Dosage: 1 PILL DAILY ONCE DAILY TAKEN BY MOUTH
     Route: 048
     Dates: start: 20140627, end: 20140725

REACTIONS (4)
  - Hyperhidrosis [None]
  - Product substitution issue [None]
  - Therapeutic response changed [None]
  - Tic [None]

NARRATIVE: CASE EVENT DATE: 20140725
